FAERS Safety Report 19221747 (Version 1)
Quarter: 2021Q2

REPORT INFORMATION
  Report Type: Spontaneous
  Country: US (occurrence: US)
  Receive Date: 20210505
  Receipt Date: 20210505
  Transmission Date: 20210717
  Serious: Yes (Hospitalization)
  Sender: FDA-Public Use
  Company Number: None

PATIENT
  Age: 65 Year
  Sex: Female

DRUGS (1)
  1. FORTEO [Suspect]
     Active Substance: TERIPARATIDE
     Indication: BONE DISORDER
     Route: 058
     Dates: start: 20210412

REACTIONS (4)
  - Intracranial aneurysm [None]
  - Unevaluable event [None]
  - Coma [None]
  - Needle issue [None]

NARRATIVE: CASE EVENT DATE: 20210416
